FAERS Safety Report 5793260-6 (Version None)
Quarter: 2008Q2

REPORT INFORMATION
  Report Type: 
  Country: None (occurrence: None)
  Receive Date: 20080626
  Receipt Date: 20080626
  Transmission Date: 20081010
  Serious: Yes (Other)
  Sender: FDA-Public Use
  Company Number: None

PATIENT
  Age: 33 Year
  Sex: Female
  Weight: 63.9572 kg

DRUGS (1)
  1. YAZ [Suspect]
     Indication: CONTRACEPTION
     Dosage: PER INSTRUCTIONS DAILY PO
     Route: 048
     Dates: start: 20061130, end: 20070801

REACTIONS (2)
  - ANXIETY [None]
  - DEPRESSION [None]
